FAERS Safety Report 13818124 (Version 1)
Quarter: 2017Q3

REPORT INFORMATION
  Report Type: Spontaneous
  Country: US (occurrence: US)
  Receive Date: 20170731
  Receipt Date: 20170731
  Transmission Date: 20171127
  Serious: No
  Sender: FDA-Public Use
  Company Number: US-ROCHE-655248

PATIENT
  Sex: Female

DRUGS (1)
  1. BONIVA [Suspect]
     Active Substance: IBANDRONATE SODIUM
     Indication: PRODUCT USED FOR UNKNOWN INDICATION
     Dosage: STRENGTH: 3MG/ML
     Route: 042
     Dates: start: 20090724, end: 20090724

REACTIONS (7)
  - Arthralgia [Unknown]
  - Neck pain [Unknown]
  - Inflammation [Unknown]
  - Constipation [Unknown]
  - Influenza like illness [Unknown]
  - Swelling [Unknown]
  - Spinal pain [Unknown]
